FAERS Safety Report 4391114-3 (Version None)
Quarter: 2004Q3

REPORT INFORMATION
  Report Type: 
  Country: None (occurrence: None)
  Receive Date: 20040707
  Receipt Date: 20040628
  Transmission Date: 20050211
  Serious: Yes (Life-Threatening, Disabling)
  Sender: FDA-Public Use
  Company Number: US-ROCHE-372586

PATIENT
  Sex: Male

DRUGS (1)
  1. LARIAM [Suspect]
     Indication: DRUG USE FOR UNKNOWN INDICATION
     Route: 048

REACTIONS (4)
  - AGGRESSION [None]
  - BRAIN DAMAGE [None]
  - MURDER [None]
  - SUICIDE ATTEMPT [None]
